FAERS Safety Report 7690197-2 (Version None)
Quarter: 2011Q3

REPORT INFORMATION
  Report Type: 
  Country: None (occurrence: None)
  Receive Date: 20110812
  Receipt Date: 20110804
  Transmission Date: 20111222
  Serious: Yes (Hospitalization, Other)
  Sender: FDA-Public Use
  Company Number: 2011SP037265

PATIENT
  Age: 79 Year
  Sex: Male
  Weight: 88 kg

DRUGS (8)
  1. MOVIPREP [Concomitant]
  2. GRANISETRON [Concomitant]
  3. DEXAMETHASONE [Suspect]
     Indication: MULTIPLE MYELOMA
     Dosage: 20 MG;PO
     Route: 048
     Dates: start: 20090127
  4. DEXAMETHASONE [Suspect]
     Indication: MULTIPLE MYELOMA
     Dosage: 20 MG;PO
     Route: 048
     Dates: start: 20090227
  5. PREDNISOLONE [Concomitant]
  6. VELCADE [Suspect]
     Indication: MULTIPLE MYELOMA
     Dosage: 2.6 MG;IV
     Route: 042
     Dates: start: 20090227
  7. VELCADE [Suspect]
     Indication: MULTIPLE MYELOMA
     Dosage: 2.6 MG;IV
     Route: 042
     Dates: start: 20090127
  8. ISOSORBIDE MONONITRATE [Concomitant]

REACTIONS (14)
  - GASTROOESOPHAGEAL REFLUX DISEASE [None]
  - ORTHOSTATIC HYPOTENSION [None]
  - ABDOMINAL DISTENSION [None]
  - HYPOXIA [None]
  - NAUSEA [None]
  - ABDOMINAL DISCOMFORT [None]
  - LOWER RESPIRATORY TRACT INFECTION [None]
  - CONSTIPATION [None]
  - HYPOTENSION [None]
  - DEHYDRATION [None]
  - ABDOMINAL PAIN [None]
  - DIARRHOEA [None]
  - HYPONATRAEMIA [None]
  - VOMITING [None]
